FAERS Safety Report 20538282 (Version 1)
Quarter: 2022Q1

REPORT INFORMATION
  Report Type: Spontaneous
  Country: SE (occurrence: SE)
  Receive Date: 20220302
  Receipt Date: 20220302
  Transmission Date: 20220423
  Serious: Yes (Other)
  Sender: FDA-Public Use
  Company Number: None

PATIENT
  Age: 83 Year
  Sex: Male

DRUGS (5)
  1. ZYTIGA [Suspect]
     Active Substance: ABIRATERONE ACETATE
     Indication: Hormone-refractory prostate cancer
     Dosage: 500 MG 1 STYCK VARJE DAG.
     Route: 048
     Dates: start: 20201221
  2. CALCIUM CARBONATE [Concomitant]
     Active Substance: CALCIUM CARBONATE
     Indication: Product used for unknown indication
     Route: 065
  3. ALENDRONIC ACID [Concomitant]
     Active Substance: ALENDRONIC ACID
     Indication: Product used for unknown indication
     Route: 065
  4. PREDNISOLONE [Concomitant]
     Active Substance: PREDNISOLONE
     Indication: Product used for unknown indication
     Route: 065
     Dates: start: 20201221
  5. TRIPTORELIN PAMOATE [Concomitant]
     Active Substance: TRIPTORELIN PAMOATE
     Indication: Product used for unknown indication
     Route: 065
     Dates: start: 2014

REACTIONS (4)
  - Blood bilirubin increased [Not Recovered/Not Resolved]
  - Aspartate aminotransferase increased [Not Recovered/Not Resolved]
  - Alanine aminotransferase increased [Not Recovered/Not Resolved]
  - Hepatic steatosis [Not Recovered/Not Resolved]

NARRATIVE: CASE EVENT DATE: 20210125
